FAERS Safety Report 6839295-3 (Version None)
Quarter: 2010Q3

REPORT INFORMATION
  Report Type: 
  Country: None (occurrence: None)
  Receive Date: 20100714
  Receipt Date: 20100709
  Transmission Date: 20110219
  Serious: Yes (Other)
  Sender: FDA-Public Use
  Company Number: US-RB-012648-10

PATIENT
  Age: 21 Year
  Sex: Female

DRUGS (1)
  1. DELSYM COUGH SYRUP [Suspect]
     Route: 048

REACTIONS (1)
  - HALLUCINATION [None]
